FAERS Safety Report 10331545 (Version 1)
Quarter: 2014Q3

REPORT INFORMATION
  Report Type: Spontaneous
  Country: FR (occurrence: None)
  Receive Date: 20140718
  Receipt Date: 20140718
  Transmission Date: 20150326
  Serious: Yes (Hospitalization)
  Sender: FDA-Public Use
  Company Number: CLINIGEN-003421

PATIENT
  Age: 78 Year
  Sex: Female

DRUGS (10)
  1. URSODEOXYCHOLIC ACID [Concomitant]
     Active Substance: URSODIOL
  2. CYMEVAN [Concomitant]
     Active Substance: GANCICLOVIR
  3. CUBICIN [Concomitant]
     Active Substance: DAPTOMYCIN
  4. FOSCAVIR [Suspect]
     Active Substance: FOSCARNET SODIUM
     Indication: PRODUCT USED FOR UNKNOWN INDICATION
     Dates: start: 20140528, end: 20140606
  5. INEXIUM [Concomitant]
     Active Substance: ESOMEPRAZOLE
  6. TAZOCILLINE [Concomitant]
     Active Substance: PIPERACILLIN SODIUM\TAZOBACTAM SODIUM
  7. AMIKLIN [Concomitant]
     Active Substance: AMIKACIN SULFATE
  8. MYCAMINE [Concomitant]
     Active Substance: MICAFUNGIN SODIUM
  9. MEROPENEM. [Concomitant]
     Active Substance: MEROPENEM
  10. TIENAM [Concomitant]
     Active Substance: CILASTATIN SODIUM\IMIPENEM

REACTIONS (5)
  - Urine sodium increased [None]
  - Hyperchloraemia [None]
  - Diabetes insipidus [None]
  - Renal failure [None]
  - Hypernatraemia [None]

NARRATIVE: CASE EVENT DATE: 201406
